FAERS Safety Report 9412632 (Version 1)
Quarter: 2013Q3

REPORT INFORMATION
  Report Type: Spontaneous
  Country: US (occurrence: US)
  Receive Date: 20130722
  Receipt Date: 20130722
  Transmission Date: 20140515
  Serious: No
  Sender: FDA-Public Use
  Company Number: US-TARO-2012P1060884

PATIENT
  Age: 94 Year
  Sex: Female

DRUGS (3)
  1. CLOTRIMAZOLE AND BETAMETHASONE DIPROPIONATE [Suspect]
     Indication: NAIL INFECTION
  2. AMMONIUM LACTATE [Suspect]
     Indication: RASH
  3. AMMONIUM LACTATE [Suspect]
     Indication: DRY SKIN

REACTIONS (1)
  - Rash [Unknown]
